FAERS Safety Report 7791633-3 (Version None)
Quarter: 2011Q3

REPORT INFORMATION
  Report Type: 
  Country: None (occurrence: None)
  Receive Date: 20110930
  Receipt Date: 20110930
  Transmission Date: 20111222
  Serious: Yes (Other)
  Sender: FDA-Public Use
  Company Number: None

PATIENT
  Sex: Male
  Weight: 100 kg

DRUGS (9)
  1. AMLODIPINE BESYLATE [Concomitant]
  2. SPIRIVA [Concomitant]
  3. HYDROCHLOROTHIAZIDE [Suspect]
     Indication: HYPERTENSION
     Dosage: 50MG ONCE DAILY BY MOUTH
     Route: 048
     Dates: start: 20110916
  4. ACIPHEX [Concomitant]
  5. FOSINOPRIL SOD. [Concomitant]
  6. ASPIRIN [Concomitant]
  7. BYSTOLIC [Concomitant]
  8. TEKTURNA [Concomitant]
  9. SIMVASTATIN [Concomitant]

REACTIONS (5)
  - DIZZINESS [None]
  - PRODUCT QUALITY ISSUE [None]
  - NAUSEA [None]
  - FEELING ABNORMAL [None]
  - HEART RATE DECREASED [None]
